FAERS Safety Report 10092893 (Version 2)
Quarter: 2014Q3

REPORT INFORMATION
  Report Type: Spontaneous
  Country: US (occurrence: US)
  Receive Date: 20140421
  Receipt Date: 20140916
  Transmission Date: 20150326
  Serious: Yes (Other)
  Sender: FDA-Public Use
  Company Number: US-SA-2013SA102380

PATIENT
  Age: 87 Year
  Sex: Female

DRUGS (1)
  1. ALLEGRA [Suspect]
     Active Substance: FEXOFENADINE HYDROCHLORIDE
     Indication: MULTIPLE ALLERGIES
     Dosage: TAKEN FOR SINUS HEADACHE
     Route: 048
     Dates: start: 20131001, end: 20131003

REACTIONS (2)
  - Cardiac failure congestive [Unknown]
  - Drug ineffective for unapproved indication [Unknown]
